FAERS Safety Report 5926191-9 (Version None)
Quarter: 2008Q4

REPORT INFORMATION
  Report Type: 
  Country: None (occurrence: None)
  Receive Date: 20081017
  Receipt Date: 20081002
  Transmission Date: 20090506
  Serious: Yes (Hospitalization, Other)
  Sender: FDA-Public Use
  Company Number: 2007US002796

PATIENT
  Age: 6 Year
  Sex: Male
  Weight: 19.4 kg

DRUGS (10)
  1. PROGRAF [Suspect]
     Indication: RENAL TRANSPLANT
     Dates: start: 20050913
  2. ZENAPAX [Suspect]
     Indication: RENAL TRANSPLANT
     Dosage: 15 MG, UID/QD, IV NOS, 15 MG, IV NOS, 15 MG, IV NOS, 15 MG, IV NOS, 15 MG, IV NOS
     Route: 042
     Dates: start: 20050914, end: 20050914
  3. ZENAPAX [Suspect]
     Indication: RENAL TRANSPLANT
     Dosage: 15 MG, UID/QD, IV NOS, 15 MG, IV NOS, 15 MG, IV NOS, 15 MG, IV NOS, 15 MG, IV NOS
     Route: 042
     Dates: start: 20050926, end: 20050926
  4. ZENAPAX [Suspect]
     Indication: RENAL TRANSPLANT
     Dosage: 15 MG, UID/QD, IV NOS, 15 MG, IV NOS, 15 MG, IV NOS, 15 MG, IV NOS, 15 MG, IV NOS
     Route: 042
     Dates: start: 20051010, end: 20051010
  5. ZENAPAX [Suspect]
     Indication: RENAL TRANSPLANT
     Dosage: 15 MG, UID/QD, IV NOS, 15 MG, IV NOS, 15 MG, IV NOS, 15 MG, IV NOS, 15 MG, IV NOS
     Route: 042
     Dates: start: 20051024, end: 20051024
  6. ZENAPAX [Suspect]
     Indication: RENAL TRANSPLANT
     Dosage: 15 MG, UID/QD, IV NOS, 15 MG, IV NOS, 15 MG, IV NOS, 15 MG, IV NOS, 15 MG, IV NOS
     Route: 042
     Dates: start: 20051114, end: 20051114
  7. VALCYTE [Concomitant]
  8. PREVACID [Concomitant]
  9. NITROFURANTOIN [Concomitant]
  10. NASONEX [Concomitant]

REACTIONS (7)
  - COMPLICATIONS OF TRANSPLANTED KIDNEY [None]
  - GASTROINTESTINAL DISORDER [None]
  - GASTROINTESTINAL NECROSIS [None]
  - INTERNAL HERNIA [None]
  - PNEUMOTHORAX [None]
  - PYREXIA [None]
  - RENAL IMPAIRMENT [None]
